FAERS Safety Report 7718209-8 (Version None)
Quarter: 2011Q3

REPORT INFORMATION
  Report Type: 
  Country: None (occurrence: None)
  Receive Date: 20110830
  Receipt Date: 20110818
  Transmission Date: 20111222
  Serious: Yes (Hospitalization, Other)
  Sender: FDA-Public Use
  Company Number: PHHY2011FR71125

PATIENT
  Sex: Female

DRUGS (22)
  1. RAMIPRIL [Concomitant]
     Dosage: 2.5 MG, QD
  2. LEVOTHYROXINE SODIUM [Concomitant]
     Dosage: 75 MCG/DAY
  3. CELLCEPT [Suspect]
     Dosage: 500 MG, BID
     Dates: start: 20110619
  4. AMOXICILLIN TRIHYDRATE [Suspect]
     Dosage: 1 G, BID
     Route: 048
     Dates: start: 20110301
  5. GANCICLOVIR SODIUM [Suspect]
     Dosage: 350 MG,
     Route: 042
     Dates: start: 20110429, end: 20110607
  6. DECONTAMINATION [Concomitant]
     Dosage: 2 DF, 3 TIMES PER DAY
  7. CELLCEPT [Suspect]
     Dosage: 500 MG, BID
     Route: 048
     Dates: start: 20110301, end: 20110611
  8. CIPROFLOXACIN [Concomitant]
     Dosage: 400 MG, BID
  9. MYCOSTATIN [Concomitant]
     Dosage: 2 DF, 2 FLASK PER DAY
  10. VANCOMYCIN HCL [Concomitant]
     Dosage: 1 G, DAILY
  11. GELOX [Concomitant]
     Dosage: 3 DF, SACHET PER DAY
  12. FLUCONAZOLE [Concomitant]
     Dosage: 200 MG, QD
     Dates: start: 20110306
  13. OMEPRAZOLE [Concomitant]
     Dosage: 20 MG, QD
  14. NEORAL [Suspect]
     Indication: STEM CELL TRANSPLANT
     Dosage: 150 MG, BID
     Dates: start: 20110301
  15. HEPARIN [Concomitant]
     Dosage: 15000 U,
     Route: 042
  16. ZOFRAN [Concomitant]
     Dosage: 8 MG, BID
     Route: 042
  17. TRANXENE [Concomitant]
     Dosage: 5 MG, QID
  18. ZOVIRAX [Concomitant]
     Dosage: 250 MG, TID
  19. PRIMPERAN TAB [Concomitant]
     Dosage: 10 MG, TID
  20. CELLCEPT [Suspect]
     Route: 042
     Dates: start: 20110612, end: 20110619
  21. CEFTAZIDIME SODIUM [Concomitant]
     Dosage: 2 G, TID
  22. LERCANIDIPINE [Concomitant]
     Dosage: 10 MG, Q96H

REACTIONS (17)
  - LOSS OF CONSCIOUSNESS [None]
  - TREMOR [None]
  - TONGUE BITING [None]
  - EPILEPSY [None]
  - GRAND MAL CONVULSION [None]
  - URINARY INCONTINENCE [None]
  - CYTOMEGALOVIRUS INFECTION [None]
  - CLONUS [None]
  - AMNESIA [None]
  - APHASIA [None]
  - BRADYCARDIA [None]
  - JOINT STIFFNESS [None]
  - HYPERTONIA [None]
  - HEADACHE [None]
  - MALAISE [None]
  - HOT FLUSH [None]
  - DISORIENTATION [None]
